FAERS Safety Report 7681631-2 (Version None)
Quarter: 2011Q3

REPORT INFORMATION
  Report Type: 
  Country: None (occurrence: None)
  Receive Date: 20110812
  Receipt Date: 20110805
  Transmission Date: 20111222
  Serious: Yes (Hospitalization)
  Sender: FDA-Public Use
  Company Number: PHEH2011US00882

PATIENT
  Age: 23 Year
  Sex: Male

DRUGS (2)
  1. TOBI [Suspect]
     Dosage: 300 MG, BID (28 DAYS ON AND 28 DAYS OFF)
     Dates: start: 20090114
  2. PULMOZYME [Concomitant]
     Dosage: 2.5 MG, QD

REACTIONS (1)
  - UPPER RESPIRATORY TRACT INFECTION [None]
